FAERS Safety Report 7216057-9 (Version None)
Quarter: 2011Q1

REPORT INFORMATION
  Report Type: 
  Country: None (occurrence: None)
  Receive Date: 20110105
  Receipt Date: 20110105
  Transmission Date: 20110831
  Serious: Yes (Life-Threatening)
  Sender: FDA-Public Use
  Company Number: None

PATIENT
  Age: 61 Year
  Sex: Female
  Weight: 81.6475 kg

DRUGS (3)
  1. VIBATIV [Suspect]
     Indication: JOINT ABSCESS
     Dosage: 600MG Q24HR IV
     Route: 042
     Dates: start: 20100910, end: 20101029
  2. VIBATIV [Suspect]
     Indication: DISEASE RECURRENCE
     Dosage: 600MG Q24HR IV
     Route: 042
     Dates: start: 20100910, end: 20101029
  3. VIBATIV [Suspect]

REACTIONS (1)
  - EXTRASYSTOLES [None]
